FAERS Safety Report 16697151 (Version 1)
Quarter: 2019Q4

REPORT INFORMATION
  Report Type: Spontaneous
  Country: US (occurrence: US)
  Receive Date: 20190812
  Receipt Date: 20190812
  Transmission Date: 20200122
  Serious: Yes (Other)
  Sender: FDA-Public Use
  Company Number: None

PATIENT
  Age: 61 Year
  Sex: Female
  Weight: 73.35 kg

DRUGS (7)
  1. AMLODIPINE [Suspect]
     Active Substance: AMLODIPINE BESYLATE
     Indication: HYPERTENSION
     Dosage: ?          QUANTITY:1 TABLET(S);?          THERAPY ONGOING: Y
     Route: 048
     Dates: start: 20190722, end: 20190809
  2. BENADRYL HS [Concomitant]
  3. TYLENOL [Concomitant]
     Active Substance: ACETAMINOPHEN
  4. ALPRAZOLAM HS [Concomitant]
  5. RESUMED LOSARTIN [Concomitant]
  6. ASA [Concomitant]
     Active Substance: ASPIRIN
  7. BIOFREEZE [Concomitant]
     Active Substance: MENTHOL

REACTIONS (15)
  - Swollen tongue [None]
  - Abdominal pain upper [None]
  - Limb injury [None]
  - Oral contusion [None]
  - Nail injury [None]
  - Tongue biting [None]
  - Fall [None]
  - Skin abrasion [None]
  - Musculoskeletal pain [None]
  - Foot fracture [None]
  - Speech disorder [None]
  - Fatigue [None]
  - Decreased appetite [None]
  - Vision blurred [None]
  - Hypoaesthesia oral [None]

NARRATIVE: CASE EVENT DATE: 20190808
